FAERS Safety Report 6371350-7 (Version None)
Quarter: 2009Q3

REPORT INFORMATION
  Report Type: 
  Country: None (occurrence: None)
  Receive Date: 20090923
  Receipt Date: 20090909
  Transmission Date: 20100115
  Serious: Yes (Hospitalization)
  Sender: FDA-Public Use
  Company Number: AU-PFIZER INC-2009256545

PATIENT
  Age: 41 Year

DRUGS (4)
  1. MYCOBUTIN [Suspect]
     Indication: HELICOBACTER INFECTION
     Dosage: 300 MG 1X/DAY
     Route: 048
     Dates: start: 20090811, end: 20090815
  2. DOXYLIN ^ALPHAPHARM^ [Concomitant]
     Indication: HELICOBACTER INFECTION
     Dosage: 100 MG, 2X/DAY
     Route: 048
     Dates: end: 20090815
  3. PARIET [Concomitant]
     Indication: REFLUX OESOPHAGITIS
     Dosage: 20 MG, 2X/DAY
     Route: 048
  4. LOVAN [Concomitant]
     Dosage: 2 WEEKS OF MONTH

REACTIONS (11)
  - CHILLS [None]
  - FLUID INTAKE REDUCED [None]
  - GASTROINTESTINAL DISORDER [None]
  - HEPATITIS [None]
  - LEUKOPENIA [None]
  - MYALGIA [None]
  - NAUSEA [None]
  - NEUTROPENIA [None]
  - PAIN [None]
  - THROMBOCYTOPENIA [None]
  - VOMITING [None]
